FAERS Safety Report 10686827 (Version 1)
Quarter: 2015Q1

REPORT INFORMATION
  Report Type: Report from Study
  Country: BR (occurrence: BR)
  Receive Date: 20150101
  Receipt Date: 20150101
  Transmission Date: 20150720
  Serious: Yes (Other)
  Sender: FDA-Public Use
  Company Number: PHHY2014BR170259

PATIENT
  Age: 89 Year
  Sex: Male
  Weight: 62 kg

DRUGS (4)
  1. EXELON PATCH [Suspect]
     Active Substance: RIVASTIGMINE
     Indication: DEMENTIA ALZHEIMER^S TYPE
     Dosage: 9.5 MG, QD (ONE PATCH OF 10 CM2 A DAY)
     Route: 062
     Dates: start: 201405
  2. MEMANTINE [Concomitant]
     Active Substance: MEMANTINE
     Indication: DEMENTIA ALZHEIMER^S TYPE
     Dosage: 1 DF, BID (DOSE OF TWO TIMES A DAY)
     Route: 065
     Dates: start: 201402
  3. VITIS VINIFERA (GRAPE) FLOWER EXTRACT [Concomitant]
     Active Substance: VITIS VINIFERA FLOWERING TOP
     Indication: DEMENTIA ALZHEIMER^S TYPE
     Dosage: 1 DF, BID (DOSE OF TWO TIMES A DAY)
     Route: 065
     Dates: start: 201402
  4. VINPOCETINE [Concomitant]
     Active Substance: VINPOCETINE
     Indication: DEMENTIA ALZHEIMER^S TYPE
     Dosage: 1 DF, BID (DOSE OF TWO TIMES A DAY)
     Route: 065
     Dates: start: 201402

REACTIONS (14)
  - Fall [Unknown]
  - Skin injury [Unknown]
  - Feeling abnormal [Recovering/Resolving]
  - Application site erythema [Recovering/Resolving]
  - Weight increased [Unknown]
  - Application site hypersensitivity [Recovering/Resolving]
  - Abdominal distension [Unknown]
  - Carotid artery stenosis [Unknown]
  - Blood triglycerides increased [Unknown]
  - Labyrinthitis [Unknown]
  - Muscular weakness [Recovering/Resolving]
  - Application site pruritus [Recovering/Resolving]
  - Dizziness [Recovering/Resolving]
  - Pain in extremity [Recovering/Resolving]

NARRATIVE: CASE EVENT DATE: 201405
